FAERS Safety Report 6179513-0 (Version None)
Quarter: 2009Q2

REPORT INFORMATION
  Report Type: 
  Country: None (occurrence: None)
  Receive Date: 20090505
  Receipt Date: 20090423
  Transmission Date: 20091009
  Serious: Yes (Death, Hospitalization)
  Sender: FDA-Public Use
  Company Number: ES-PFIZER INC-2009202148

PATIENT

DRUGS (2)
  1. FARMORUBICINA [Suspect]
     Indication: BREAST CANCER
     Dosage: 10 MG, UNK
     Dates: start: 20080924, end: 20080924
  2. TAXOTERE [Suspect]
     Indication: BREAST CANCER
     Dosage: 20 MG, UNK
     Route: 042
     Dates: start: 20080924, end: 20080924

REACTIONS (4)
  - GENERAL PHYSICAL HEALTH DETERIORATION [None]
  - RECTAL HAEMORRHAGE [None]
  - THROMBOCYTOPENIA [None]
  - VOMITING [None]
